FAERS Safety Report 8455143-2 (Version None)
Quarter: 2012Q2

REPORT INFORMATION
  Report Type: 
  Country: None (occurrence: None)
  Receive Date: 20120621
  Receipt Date: 20120615
  Transmission Date: 20120825
  Serious: Yes (Other)
  Sender: FDA-Public Use
  Company Number: US-BAYER-2012-060762

PATIENT
  Age: 67 Year
  Sex: Male
  Weight: 84.7 kg

DRUGS (5)
  1. MDX-010 [Suspect]
     Dosage: CYCLES 5+, 10 MG/KG ON DAY 1 Q12 WEEKS
     Dates: end: 20120508
  2. PREDNISONE TAB [Concomitant]
     Dosage: 5 MG, QD
     Dates: start: 20120605
  3. MDX-010 [Suspect]
     Indication: MALIGNANT MELANOMA
     Dosage: CYCLE 1-4, 10 MG/KG ON DAY 1 IN A 21 DAY CYCLE
     Dates: start: 20110628
  4. PREDNISONE TAB [Concomitant]
     Dosage: 15 MG, QD
     Dates: end: 20120605
  5. SARGRAMOSTIM [Suspect]
     Indication: MALIGNANT MELANOMA
     Dosage: 250 ?G, QD ON DAYS 1-14 IN A 21 DAY CYCLE
     Dates: start: 20110628, end: 20120530

REACTIONS (4)
  - PANCREATITIS [None]
  - DECREASED APPETITE [None]
  - LIPASE INCREASED [None]
  - ARTHRALGIA [None]
